FAERS Safety Report 14701199 (Version 7)
Quarter: 2019Q4

REPORT INFORMATION
  Report Type: Report from Study
  Country: JP (occurrence: JP)
  Receive Date: 20180330
  Receipt Date: 20191220
  Transmission Date: 20200122
  Serious: Yes (Hospitalization, Other)
  Sender: FDA-Public Use
  Company Number: JP-CELGENEUS-JPN-20180309753

PATIENT
  Age: 67 Year
  Sex: Male

DRUGS (28)
  1. BORTEZOMIB. [Suspect]
     Active Substance: BORTEZOMIB
     Dosage: UNKNOWN
     Route: 065
     Dates: start: 20180604, end: 20180712
  2. CEFEPIME [Suspect]
     Active Substance: CEFEPIME HYDROCHLORIDE
     Indication: PYREXIA
     Dosage: UNKNOWN
     Route: 041
     Dates: start: 20170808, end: 20170811
  3. ONETRAM [Concomitant]
     Active Substance: TRAMADOL HYDROCHLORIDE
     Indication: PLASMA CELL MYELOMA
     Dosage: UNKNOWN
     Route: 048
  4. VICCLOX [Suspect]
     Active Substance: ACYCLOVIR SODIUM
     Indication: PROPHYLAXIS
     Dosage: UNKNOWN
     Route: 048
     Dates: start: 20170728
  5. BORTEZOMIB. [Suspect]
     Active Substance: BORTEZOMIB
     Indication: PLASMA CELL MYELOMA
     Dosage: UNKNOWN
     Route: 058
     Dates: start: 20170728, end: 20170807
  6. KENKETU GLOVENIN-I [Concomitant]
     Active Substance: HUMAN IMMUNOGLOBULIN G
     Indication: ADVERSE EVENT
     Dosage: UNKNOWN
     Route: 041
  7. DAIPHEN [Concomitant]
     Active Substance: SULFAMETHOXAZOLE\TRIMETHOPRIM
     Indication: PROPHYLAXIS
     Dosage: UNKNOWN
     Route: 048
  8. REVLIMID [Suspect]
     Active Substance: LENALIDOMIDE
     Dosage: 10 MILLIGRAM
     Route: 048
     Dates: start: 20180208, end: 20180208
  9. LENADEX [Suspect]
     Active Substance: DEXAMETHASONE ACETATE
     Indication: PLASMA CELL MYELOMA
     Dosage: 40 MILLIGRAM
     Route: 048
     Dates: start: 20170728, end: 20170811
  10. BAYASPIRIN [Concomitant]
     Active Substance: ASPIRIN
     Indication: PROPHYLAXIS
     Dosage: UNKNOWN
     Route: 048
  11. CRESTOR [Concomitant]
     Active Substance: ROSUVASTATIN CALCIUM
     Indication: PRODUCT USED FOR UNKNOWN INDICATION
     Dosage: UNKNOWN
     Route: 048
  12. VANCOMYCIN [Concomitant]
     Active Substance: VANCOMYCIN
     Indication: ADVERSE EVENT
     Dosage: UNKNOWN
     Route: 041
  13. REVLIMID [Suspect]
     Active Substance: LENALIDOMIDE
     Dosage: 15 MILLIGRAM
     Route: 048
     Dates: start: 20180131, end: 20180207
  14. LENADEX [Suspect]
     Active Substance: DEXAMETHASONE ACETATE
     Route: 048
     Dates: start: 20180604, end: 20180712
  15. NORVASC [Concomitant]
     Active Substance: AMLODIPINE BESYLATE
     Indication: PRODUCT USED FOR UNKNOWN INDICATION
     Dosage: UNKNOWN
     Route: 048
  16. LANSOPRAZOLE. [Concomitant]
     Active Substance: LANSOPRAZOLE
     Indication: PROPHYLAXIS
     Dosage: UNKNOWN
     Route: 048
  17. LEVOFLOXACIN. [Concomitant]
     Active Substance: LEVOFLOXACIN
     Indication: ADVERSE EVENT
     Dosage: UNKNOWN
     Route: 048
  18. LIXIANA [Concomitant]
     Active Substance: EDOXABAN TOSYLATE
     Indication: PROPHYLAXIS
  19. REVLIMID [Suspect]
     Active Substance: LENALIDOMIDE
     Indication: PLASMA CELL MYELOMA
     Dosage: 10 MILLIGRAM
     Route: 048
     Dates: start: 20170728, end: 20170810
  20. LENADEX [Suspect]
     Active Substance: DEXAMETHASONE ACETATE
     Route: 048
     Dates: start: 20180131, end: 20180208
  21. LENADEX [Suspect]
     Active Substance: DEXAMETHASONE ACETATE
     Route: 048
     Dates: start: 20180406, end: 20180603
  22. LIXIANA [Concomitant]
     Active Substance: EDOXABAN TOSYLATE
     Indication: ADVERSE EVENT
     Dosage: UNKNOWN
     Route: 048
     Dates: start: 20180208
  23. BAKTAR [Suspect]
     Active Substance: SULFAMETHOXAZOLE\TRIMETHOPRIM
     Indication: PROPHYLAXIS
     Dosage: UNKNOWN
     Route: 048
     Dates: start: 20170727, end: 20180807
  24. FLUCONAZOLE. [Suspect]
     Active Substance: FLUCONAZOLE
     Indication: PROPHYLAXIS
     Dosage: UNKNOWN
     Route: 048
     Dates: start: 20170728
  25. ZOLEDRONIC ACID [Suspect]
     Active Substance: ZOLEDRONIC ACID
     Indication: PLASMA CELL MYELOMA
     Dosage: UNKNOWN
     Route: 041
  26. BORTEZOMIB. [Suspect]
     Active Substance: BORTEZOMIB
     Dosage: UNKNOWN
     Route: 065
     Dates: start: 20180406, end: 20180603
  27. BENAMBAX [Concomitant]
     Active Substance: PENTAMIDINE
     Indication: PROPHYLAXIS
     Dosage: UNKNOWN
     Route: 055
  28. CYCLOPHOSPHAMIDE. [Concomitant]
     Active Substance: CYCLOPHOSPHAMIDE
     Indication: PLASMA CELL MYELOMA
     Dosage: UNKNOWN
     Route: 065
     Dates: start: 20180604, end: 20180712

REACTIONS (10)
  - Pyrexia [Recovered/Resolved]
  - Cytomegalovirus enteritis [Recovered/Resolved]
  - Cytomegalovirus enterocolitis [Recovered/Resolved]
  - Rash [Recovered/Resolved]
  - Lymphocyte count decreased [Recovered/Resolved]
  - Pneumonia bacterial [Recovered/Resolved]
  - Neutrophil count decreased [Recovered/Resolved]
  - Platelet count decreased [Recovered/Resolved]
  - Hypoalbuminaemia [Recovering/Resolving]
  - Deep vein thrombosis [Recovering/Resolving]

NARRATIVE: CASE EVENT DATE: 20170808
